FAERS Safety Report 9634440 (Version 2)
Quarter: 2014Q1

REPORT INFORMATION
  Report Type: Spontaneous
  Country: NL (occurrence: None)
  Receive Date: 20131017
  Receipt Date: 20140218
  Transmission Date: 20141002
  Serious: Yes (Hospitalization)
  Sender: FDA-Public Use
  Company Number: 2013AP008885

PATIENT
  Age: 71 Year
  Sex: Male

DRUGS (3)
  1. CIPROFLOXACIN [Suspect]
     Indication: PRODUCT USED FOR UNKNOWN INDICATION
  2. CLINDAMYCIN (CLINDAMYCIN) [Suspect]
     Dosage: IV_INF
     Route: 042
  3. AMOXICILLIN AND CLAVULANATE POTASSIUM [Suspect]
     Dosage: IV_INF
     Route: 042

REACTIONS (3)
  - Haemorrhagic vasculitis [None]
  - Gangrene [None]
  - Leg amputation [None]
